FAERS Safety Report 18397586 (Version 1)
Quarter: 2020Q4

REPORT INFORMATION
  Report Type: Spontaneous
  Country: US (occurrence: US)
  Receive Date: 20201019
  Receipt Date: 20201019
  Transmission Date: 20210114
  Serious: No
  Sender: FDA-Public Use
  Company Number: US-TEVA-2020-US-1840714

PATIENT
  Sex: Female

DRUGS (2)
  1. AJOVY [Suspect]
     Active Substance: FREMANEZUMAB-VFRM
  2. AJOVY [Suspect]
     Active Substance: FREMANEZUMAB-VFRM
     Dosage: ^I^VE BEEN ON AJOVY OH MOST 8 MONTHS^
     Route: 065
     Dates: start: 2020

REACTIONS (4)
  - Injection site induration [Unknown]
  - Infection [Unknown]
  - Injection site bruising [Unknown]
  - Injection site warmth [Unknown]

NARRATIVE: CASE EVENT DATE: 2020
